FAERS Safety Report 8990759 (Version 1)
Quarter: 2012Q4

REPORT INFORMATION
  Report Type: Spontaneous
  Country: US (occurrence: None)
  Receive Date: 20121226
  Receipt Date: 20121226
  Transmission Date: 20130627
  Serious: Yes (Life-Threatening, Hospitalization, Other)
  Sender: FDA-Public Use
  Company Number: None

PATIENT
  Age: 58 Year
  Sex: Male
  Weight: 90.6 kg

DRUGS (1)
  1. HEPARIN [Suspect]
     Indication: PULMONARY EMBOLISM
     Dosage: UNITS
     Dates: start: 20121109, end: 20121111

REACTIONS (4)
  - Haemoglobin decreased [None]
  - Faeces discoloured [None]
  - Gastric haemorrhage [None]
  - Blood pressure decreased [None]
